FAERS Safety Report 6788369-4 (Version None)
Quarter: 2010Q2

REPORT INFORMATION
  Report Type: 
  Country: None (occurrence: None)
  Receive Date: 20100623
  Receipt Date: 20080403
  Transmission Date: 20101027
  Serious: No
  Sender: FDA-Public Use
  Company Number: US-PFIZER INC-2008014499

PATIENT
  Sex: Female
  Weight: 75 kg

DRUGS (6)
  1. SUTENT [Suspect]
     Indication: RENAL CELL CARCINOMA
     Dosage: 4 WEEKS ON/ 2 WEEKS OFF
  2. TOPROL-XL [Concomitant]
     Indication: BLOOD PRESSURE ABNORMAL
  3. ANALGESICS [Concomitant]
  4. DILANTIN [Concomitant]
     Indication: BRAIN NEOPLASM
  5. PREDNISONE [Concomitant]
     Indication: ARTHRITIS
  6. NEXIUM [Concomitant]
     Indication: GASTRIC DISORDER

REACTIONS (2)
  - DISEASE PROGRESSION [None]
  - RENAL CELL CARCINOMA [None]
